FAERS Safety Report 7029728-4 (Version None)
Quarter: 2010Q4

REPORT INFORMATION
  Report Type: 
  Country: None (occurrence: None)
  Receive Date: 20101005
  Receipt Date: 20101005
  Transmission Date: 20110411
  Serious: Yes (Life-Threatening, Other)
  Sender: FDA-Public Use
  Company Number: None

PATIENT
  Age: 4 Year
  Sex: Male
  Weight: 18.1439 kg

DRUGS (1)
  1. MOTRIN [Suspect]

REACTIONS (4)
  - DRUG HYPERSENSITIVITY [None]
  - DYSPNOEA [None]
  - LIP SWELLING [None]
  - SWELLING FACE [None]
